FAERS Safety Report 8987365 (Version 1)
Quarter: 2012Q4

REPORT INFORMATION
  Report Type: 
  Country: US (occurrence: US)
  Receive Date: 20121226
  Receipt Date: 20121226
  Transmission Date: 20130627
  Serious: Yes (Hospitalization)
  Sender: FDA-Public Use
  Company Number: US-TEVA-377429USA

PATIENT
  Sex: Male
  Weight: 68.1 kg

DRUGS (7)
  1. LISINOPRIL [Suspect]
  2. XARELTO (RIVAROXABAN) [Suspect]
     Indication: IMPLANTABLE DEFIBRILLATOR INSERTION
     Dosage: 20 Milligram Daily;
     Dates: start: 2012, end: 20121108
  3. PRAVASTATIN [Suspect]
  4. METOPROLOL [Suspect]
  5. NIASPAN [Suspect]
  6. VITAMIN B [Suspect]
  7. FISH OIL [Suspect]

REACTIONS (7)
  - Gastric haemorrhage [Recovered/Resolved]
  - Gastric disorder [Not Recovered/Not Resolved]
  - Renal disorder [Recovering/Resolving]
  - Chest pain [Unknown]
  - Diarrhoea [Recovering/Resolving]
  - Fatigue [Unknown]
  - Decreased appetite [Unknown]
